FAERS Safety Report 5944528-1 (Version None)
Quarter: 2008Q4

REPORT INFORMATION
  Report Type: 
  Country: None (occurrence: None)
  Receive Date: 20081107
  Receipt Date: 20081104
  Transmission Date: 20090506
  Serious: Yes (Disabling)
  Sender: FDA-Public Use
  Company Number: GB-BRISTOL-MYERS SQUIBB COMPANY-14397269

PATIENT
  Age: 41 Year
  Sex: Female

DRUGS (2)
  1. MITOMYCIN [Suspect]
     Indication: ANAL CANCER
     Dosage: ROUTE OF ADMINSTRATION IJ
     Route: 042
     Dates: start: 20071101, end: 20071101
  2. FLUOROURACIL [Concomitant]
     Dosage: INJECTION 250 KYOWA(FLUOROURACIL)
     Dates: start: 20071101, end: 20071101

REACTIONS (1)
  - ARTHRALGIA [None]
